FAERS Safety Report 11162970 (Version 1)
Quarter: 2015Q2

REPORT INFORMATION
  Report Type: Spontaneous
  Country: SE (occurrence: None)
  Receive Date: 20150602
  Receipt Date: 20150602
  Transmission Date: 20150821
  Serious: No
  Sender: FDA-Public Use
  Company Number: 1505SWE013950

PATIENT
  Sex: Male

DRUGS (6)
  1. IDOTRIM (TRIMETHOPRIM) [Concomitant]
  2. VITAMIN D [Concomitant]
     Active Substance: CHOLECALCIFEROL
  3. SIMVASTATIN. [Concomitant]
     Active Substance: SIMVASTATIN
  4. CLOPIDOGREL [Concomitant]
     Active Substance: CLOPIDOGREL BISULFATE
  5. CEDAX [Suspect]
     Active Substance: CEFTIBUTEN DIHYDRATE
     Indication: URINARY TRACT INFECTION
     Route: 048
     Dates: start: 20150512, end: 20150522
  6. HIPREX (METHENAMINE HIPPURATE) [Concomitant]

REACTIONS (2)
  - Renal pain [None]
  - Inappropriate schedule of drug administration [None]

NARRATIVE: CASE EVENT DATE: 201505
